FAERS Safety Report 21039637 (Version 4)
Quarter: 2022Q4

REPORT INFORMATION
  Report Type: Spontaneous
  Country: US (occurrence: US)
  Receive Date: 20220704
  Receipt Date: 20221223
  Transmission Date: 20230112
  Serious: Yes (Death, Hospitalization, Other)
  Sender: FDA-Public Use
  Company Number: US-GLAXOSMITHKLINE-US2022100459

PATIENT

DRUGS (1)
  1. NUCALA [Suspect]
     Active Substance: MEPOLIZUMAB
     Indication: Asthma
     Dosage: 100 MG/ML
     Dates: start: 2022, end: 202208

REACTIONS (5)
  - Cardiac failure congestive [Fatal]
  - Hospitalisation [Unknown]
  - Back pain [Unknown]
  - Dyspnoea [Unknown]
  - Hospice care [Unknown]

NARRATIVE: CASE EVENT DATE: 20220810
